FAERS Safety Report 7033238-8 (Version None)
Quarter: 2010Q4

REPORT INFORMATION
  Report Type: 
  Country: None (occurrence: None)
  Receive Date: 20101007
  Receipt Date: 20100929
  Transmission Date: 20110411
  Serious: Yes (Hospitalization)
  Sender: FDA-Public Use
  Company Number: DE-ROXANE LABORATORIES, INC.-2010-RO-01283RO

PATIENT
  Age: 7 Year
  Sex: Female

DRUGS (7)
  1. PREDNISONE [Suspect]
     Indication: JUVENILE ARTHRITIS
     Dosage: 40 MG
  2. METHOTREXATE [Suspect]
     Indication: JUVENILE ARTHRITIS
     Route: 048
  3. FOLIC ACID [Suspect]
     Indication: JUVENILE ARTHRITIS
     Dosage: 5 MG
  4. DOCITONE [Suspect]
     Indication: JUVENILE ARTHRITIS
  5. ENALAPRIL MALEATE [Suspect]
     Indication: JUVENILE ARTHRITIS
  6. COTRIM [Suspect]
     Indication: JUVENILE ARTHRITIS
  7. OMEPRAZOLE [Suspect]
     Indication: JUVENILE ARTHRITIS

REACTIONS (1)
  - EPIDURAL LIPOMATOSIS [None]
